FAERS Safety Report 6318793-5 (Version None)
Quarter: 2009Q3

REPORT INFORMATION
  Report Type: 
  Country: None (occurrence: None)
  Receive Date: 20090820
  Receipt Date: 20090820
  Transmission Date: 20100115
  Serious: No
  Sender: FDA-Public Use
  Company Number: None

PATIENT
  Sex: Female

DRUGS (2)
  1. KLONOPIN [Suspect]
     Indication: PSYCHOTIC DISORDER
     Dosage: 1 MG TID PO TAKING SINCE 1990'S
     Route: 048
  2. KLONOPIN [Suspect]
     Indication: SENILE DEMENTIA
     Dosage: 1 MG TID PO TAKING SINCE 1990'S
     Route: 048

REACTIONS (3)
  - AGITATION [None]
  - EXTRAPYRAMIDAL DISORDER [None]
  - PRODUCT SUBSTITUTION ISSUE [None]
